FAERS Safety Report 16850844 (Version 1)
Quarter: 2019Q3

REPORT INFORMATION
  Report Type: Spontaneous
  Country: US (occurrence: US)
  Receive Date: 20190925
  Receipt Date: 20190925
  Transmission Date: 20191005
  Serious: No
  Sender: FDA-Public Use
  Company Number: US-THERAPEUTICSMD-2019TMD01387

PATIENT
  Sex: Female

DRUGS (1)
  1. IMVEXXY [Suspect]
     Active Substance: ESTRADIOL
     Dosage: UNK, 2X/WEEK (ON MONDAY AND EITHER THURSDAY OR FRIDAY)

REACTIONS (3)
  - Headache [Not Recovered/Not Resolved]
  - Product dose omission [Unknown]
  - Off label use [Not Recovered/Not Resolved]
